FAERS Safety Report 12197603 (Version 3)
Quarter: 2016Q2

REPORT INFORMATION
  Report Type: Spontaneous
  Country: JP (occurrence: JP)
  Receive Date: 20160322
  Receipt Date: 20160531
  Transmission Date: 20160815
  Serious: Yes (Death, Life-Threatening)
  Sender: FDA-Public Use
  Company Number: JP-ACTELION-A-CH2016-132896

PATIENT
  Age: 75 Year
  Sex: Female

DRUGS (20)
  1. OPSUMIT [Suspect]
     Active Substance: MACITENTAN
     Indication: PULMONARY ARTERIAL HYPERTENSION
     Dosage: 10 MG, OD
     Route: 048
     Dates: start: 20160106, end: 20160212
  2. WARFARIN POTASSIUM [Concomitant]
     Active Substance: WARFARIN POTASSIUM
  3. METENOLONE ACETATE [Concomitant]
     Active Substance: METHENOLONE ACETATE
  4. CARVEDILOL. [Concomitant]
     Active Substance: CARVEDILOL
  5. FEBUXOSTAT. [Concomitant]
     Active Substance: FEBUXOSTAT
  6. INSULIN ASPART [Concomitant]
     Active Substance: INSULIN ASPART
  7. ENALAPRIL MALEATE. [Concomitant]
     Active Substance: ENALAPRIL MALEATE
  8. CHLORPROMAZINE HYDROCHLORIDE. [Concomitant]
     Active Substance: CHLORPROMAZINE HYDROCHLORIDE
  9. SULFAMETHOXAZOLE-TRIMETHOPRIM (SMZ) [Concomitant]
     Active Substance: SULFAMETHOXAZOLE\TRIMETHOPRIM
  10. FLUNITRAZEPAM [Concomitant]
     Active Substance: FLUNITRAZEPAM
  11. CLOTIAZEPAM [Concomitant]
     Active Substance: CLOTIAZEPAM
  12. PREDNISOLONE. [Concomitant]
     Active Substance: PREDNISOLONE
  13. ESOMEPRAZOLE MAGNESIUM. [Concomitant]
     Active Substance: ESOMEPRAZOLE MAGNESIUM
  14. BROTIZOLAM [Concomitant]
     Active Substance: BROTIZOLAM
  15. SENNA LEAF [Concomitant]
     Active Substance: SENNA LEAF
  16. DARBEPOETIN ALFA [Concomitant]
     Active Substance: DARBEPOETIN ALFA
  17. LEVOTHYROXINE SODIUM. [Concomitant]
     Active Substance: LEVOTHYROXINE SODIUM
  18. MIRTAZAPINE. [Concomitant]
     Active Substance: MIRTAZAPINE
  19. INSULIN GLARGINE [Concomitant]
     Active Substance: INSULIN GLARGINE
  20. OXYGEN. [Concomitant]
     Active Substance: OXYGEN

REACTIONS (11)
  - Chronic kidney disease [Not Recovered/Not Resolved]
  - Blood urea increased [Not Recovered/Not Resolved]
  - Blood creatinine increased [Not Recovered/Not Resolved]
  - Platelet count decreased [Not Recovered/Not Resolved]
  - Haemoglobin decreased [Not Recovered/Not Resolved]
  - Packed red blood cell transfusion [Unknown]
  - Anaemia [Not Recovered/Not Resolved]
  - Red blood cell count decreased [Not Recovered/Not Resolved]
  - Haematocrit decreased [Not Recovered/Not Resolved]
  - Platelet transfusion [Unknown]
  - Pulmonary hypertension [Fatal]

NARRATIVE: CASE EVENT DATE: 20160121
